FAERS Safety Report 21898947 (Version 1)
Quarter: 2023Q1

REPORT INFORMATION
  Report Type: Spontaneous
  Country: US (occurrence: US)
  Receive Date: 20230123
  Receipt Date: 20230123
  Transmission Date: 20230418
  Serious: No
  Sender: FDA-Public Use
  Company Number: US-FERRINGPH-2022FE03575

PATIENT
  Age: 70 Year
  Sex: Female
  Weight: 99.773 kg

DRUGS (5)
  1. CLENPIQ [Suspect]
     Active Substance: ANHYDROUS CITRIC ACID\MAGNESIUM OXIDE\SODIUM PICOSULFATE
     Indication: Bowel preparation
     Dosage: 2 BOTTLES
     Route: 048
     Dates: start: 20220707, end: 20220708
  2. LEXAPRO [Concomitant]
     Active Substance: ESCITALOPRAM OXALATE
     Indication: Depression
     Dosage: 10 MG
     Route: 065
  3. NEXIUM I.V. [Concomitant]
     Active Substance: ESOMEPRAZOLE SODIUM
     Indication: Product used for unknown indication
     Dosage: 40 MG
     Route: 065
  4. SAXENDA [Concomitant]
     Active Substance: LIRAGLUTIDE
     Indication: Weight control
     Dosage: 1.2 MG
     Route: 065
  5. MELOXICAM [Concomitant]
     Active Substance: MELOXICAM
     Indication: Arthritis
     Dosage: STOPPED TAKING A FEW WEEKS PRIOR TO COLONOSCOPY, BUT TOOK IT  DAYS (03 AND 04JUL)
     Route: 065

REACTIONS (1)
  - Drug ineffective [Unknown]
